FAERS Safety Report 5538265-5 (Version None)
Quarter: 2007Q4

REPORT INFORMATION
  Report Type: 
  Country: None (occurrence: None)
  Receive Date: 20071123
  Receipt Date: 20070817
  Transmission Date: 20080405
  Serious: Yes (Hospitalization)
  Sender: FDA-Public Use
  Company Number: US-JNJFOC-20070803819

PATIENT
  Age: 39 Year
  Sex: Male

DRUGS (9)
  1. LEVAQUIN [Suspect]
     Indication: DRUG USE FOR UNKNOWN INDICATION
     Dosage: ORAL
     Route: 048
     Dates: start: 20070706, end: 20070720
  2. BACTRIM [Suspect]
     Indication: URINARY TRACT INFECTION
     Dosage: ORAL
     Route: 048
     Dates: start: 20070721, end: 20070724
  3. LORTAB [Suspect]
     Indication: MUSCULOSKELETAL PAIN
     Dosage: IN 1 AS NECESSARY
     Dates: start: 20070724
  4. RUFINAMIDE                           (RUFINAMIDE) UNSPECIFIED [Suspect]
     Indication: EPILEPSY
     Dosage: 400 MG, 8 IN 1 DAY, ORAL 400 MG, 10 IN 1 DAY, ORAL
     Route: 048
     Dates: start: 20070530, end: 20070724
  5. RUFINAMIDE                           (RUFINAMIDE) UNSPECIFIED [Suspect]
     Indication: EPILEPSY
     Dosage: 400 MG, 8 IN 1 DAY, ORAL 400 MG, 10 IN 1 DAY, ORAL
     Route: 048
     Dates: start: 20070725
  6. LEVETIRACETAM                         (LEVETIRACETAM) UNSPECIFIED [Concomitant]
  7. LAMOTRIGINE (LAMOTRIGINE) UNSPECIFIED [Concomitant]
  8. NEURONTIN           (GABAPENTIN) UNSPECIFIED [Concomitant]
  9. BACTROBAN                             (MUPIROCIN) UNSPECIFIED [Concomitant]

REACTIONS (1)
  - WHITE BLOOD CELL COUNT DECREASED [None]
